FAERS Safety Report 7104415-2 (Version None)
Quarter: 2010Q4

REPORT INFORMATION
  Report Type: 
  Country: None (occurrence: None)
  Receive Date: 20101116
  Receipt Date: 20101026
  Transmission Date: 20110411
  Serious: Yes (Hospitalization)
  Sender: FDA-Public Use
  Company Number: GB-AMGEN-GBRCT2010001698

PATIENT

DRUGS (10)
  1. ETANERCEPT [Suspect]
     Indication: RHEUMATOID ARTHRITIS
     Dosage: 25 MG, 2 TIMES/WK
     Route: 058
     Dates: start: 20030729
  2. ETANERCEPT [Suspect]
     Dosage: 25 MG, 2 TIMES/WK
     Route: 058
  3. AMITRIPTYLINE HCL [Concomitant]
     Dosage: UNKNOWN
  4. DIDRONEL [Concomitant]
     Dosage: UNKNOWN
  5. PARACETAMOL [Concomitant]
     Dosage: UNKNOWN
  6. IRBESARTAN [Concomitant]
     Dosage: UNKNOWN
  7. PRILOSEC [Concomitant]
     Dosage: UNKNOWN
  8. ESTROGENS [Concomitant]
     Dosage: UNKNOWN
  9. PREDNISOLONE [Concomitant]
     Dosage: UNKNOWN
  10. INDAPAMIDE [Concomitant]
     Dosage: UNKNOWN

REACTIONS (2)
  - FRACTURE NONUNION [None]
  - HIP FRACTURE [None]
